FAERS Safety Report 11306509 (Version 7)
Quarter: 2016Q3

REPORT INFORMATION
  Report Type: Report from Study
  Country: JP (occurrence: JP)
  Receive Date: 20150723
  Receipt Date: 20160708
  Transmission Date: 20161109
  Serious: Yes (Life-Threatening, Hospitalization)
  Sender: FDA-Public Use
  Company Number: JP-EISAI MEDICAL RESEARCH-EC-2015-008790

PATIENT
  Age: 66 Year
  Sex: Female
  Weight: 26 kg

DRUGS (12)
  1. AZUNOL [Concomitant]
     Active Substance: SODIUM GUALENATE
  2. RINDERON V [Concomitant]
     Active Substance: BETAMETHASONE VALERATE
  3. CRESTOR [Concomitant]
     Active Substance: ROSUVASTATIN CALCIUM
  4. LENVIMA [Suspect]
     Active Substance: LENVATINIB
     Dates: start: 20150715, end: 20150717
  5. LOXOPROFEN [Concomitant]
     Active Substance: LOXOPROFEN
  6. LENVIMA [Suspect]
     Active Substance: LENVATINIB
     Indication: ANAPLASTIC THYROID CANCER
     Route: 048
     Dates: start: 20150609, end: 20150624
  7. MUCOSOLVAN [Concomitant]
     Active Substance: AMBROXOL HYDROCHLORIDE
  8. MAGLAX [Concomitant]
     Active Substance: MAGNESIUM OXIDE
  9. REBAMIPIDE [Concomitant]
     Active Substance: REBAMIPIDE
  10. LENVIMA [Suspect]
     Active Substance: LENVATINIB
     Dates: start: 20150629, end: 20150708
  11. LEVOTHYROXINE SODIUM HYDRATE [Concomitant]
     Active Substance: LEVOTHYROXINE SODIUM
  12. HIRUDOID [Concomitant]
     Active Substance: GLYCOSAMINOGLYCANS

REACTIONS (3)
  - Arterial haemorrhage [Recovered/Resolved]
  - Tumour haemorrhage [Recovering/Resolving]
  - Impaired healing [Not Recovered/Not Resolved]

NARRATIVE: CASE EVENT DATE: 20150717
